FAERS Safety Report 5787123-X (Version None)
Quarter: 2008Q2

REPORT INFORMATION
  Report Type: 
  Country: None (occurrence: None)
  Receive Date: 20080623
  Receipt Date: 20080623
  Transmission Date: 20081010
  Serious: Yes (Other)
  Sender: FDA-Public Use
  Company Number: None

PATIENT
  Sex: Female
  Weight: 55.3388 kg

DRUGS (1)
  1. COPAXONE [Suspect]
     Indication: MULTIPLE SCLEROSIS
     Dosage: 20MG DAILY SQ
     Route: 058
     Dates: start: 20080612, end: 20080618

REACTIONS (12)
  - BRONCHIAL DISORDER [None]
  - EAR PAIN [None]
  - FATIGUE [None]
  - HEADACHE [None]
  - INSOMNIA [None]
  - LYMPHADENOPATHY [None]
  - MENTAL DISABILITY [None]
  - PHARYNGOLARYNGEAL PAIN [None]
  - PYREXIA [None]
  - QUALITY OF LIFE DECREASED [None]
  - RESPIRATORY DISTRESS [None]
  - TREATMENT NONCOMPLIANCE [None]
